FAERS Safety Report 5309276-X (Version None)
Quarter: 2007Q2

REPORT INFORMATION
  Report Type: 
  Country: None (occurrence: None)
  Receive Date: 20070427
  Receipt Date: 20070416
  Transmission Date: 20071010
  Serious: Yes (Hospitalization)
  Sender: FDA-Public Use
  Company Number: JP-ROCHE-491206

PATIENT
  Age: 53 Year
  Sex: Female

DRUGS (2)
  1. TAMIFLU [Suspect]
     Indication: INFLUENZA
     Route: 048
     Dates: start: 20060302, end: 20060302
  2. 1 CONCOMITANT DRUG [Concomitant]
     Dosage: DRUG CONSISTS OF ANTIPYRETICS, ANALGESICS AND ANTI-INFLAMMATORY,
     Route: 054
     Dates: start: 20060302, end: 20060302

REACTIONS (1)
  - DEPRESSED LEVEL OF CONSCIOUSNESS [None]
